FAERS Safety Report 9165418 (Version 1)
Quarter: 2013Q1

REPORT INFORMATION
  Report Type: Spontaneous
  Country: US (occurrence: None)
  Receive Date: 20130314
  Receipt Date: 20130314
  Transmission Date: 20140127
  Serious: No
  Sender: FDA-Public Use
  Company Number: None

PATIENT
  Sex: 0

DRUGS (1)
  1. ROGAINE FOAM [Suspect]

REACTIONS (9)
  - Eyelid oedema [None]
  - Muscle twitching [None]
  - Hypoaesthesia [None]
  - Pharyngeal oedema [None]
  - Sexual dysfunction [None]
  - Palpitations [None]
  - Chest pain [None]
  - Arthralgia [None]
  - Vitamin B12 decreased [None]
